FAERS Safety Report 7601509-X (Version None)
Quarter: 2011Q3

REPORT INFORMATION
  Report Type: 
  Country: None (occurrence: None)
  Receive Date: 20110711
  Receipt Date: 20110629
  Transmission Date: 20111222
  Serious: Yes (Hospitalization)
  Sender: FDA-Public Use
  Company Number: US-PFIZER INC-2011115079

PATIENT
  Age: 56 Year
  Sex: Female
  Weight: 55.5 kg

DRUGS (5)
  1. LOVENOX [Concomitant]
  2. TORISEL [Suspect]
     Indication: UTERINE LEIOMYOSARCOMA
     Dosage: 25 MG, WEEKLY OVER 30 MINUTES
     Route: 042
     Dates: start: 20110113, end: 20110127
  3. IMC-A12 [Suspect]
     Indication: UTERINE LEIOMYOSARCOMA
     Dosage: 6 MG/KG, WEEKLY OVER 60 MINUTES
     Route: 042
     Dates: start: 20110113, end: 20110127
  4. ASCORBIC ACID [Concomitant]
  5. ZINC SULFATE [Concomitant]

REACTIONS (1)
  - SYNCOPE [None]
